FAERS Safety Report 20802532 (Version 1)
Quarter: 2022Q2

REPORT INFORMATION
  Report Type: Spontaneous
  Country: US (occurrence: None)
  Receive Date: 20220509
  Receipt Date: 20220509
  Transmission Date: 20220721
  Serious: Yes (Other)
  Sender: FDA-Public Use
  Company Number: None

PATIENT

DRUGS (7)
  1. TAMOXIFEN [Suspect]
     Active Substance: TAMOXIFEN
     Dosage: FREQUENCY : DAILY;?
     Route: 048
     Dates: start: 20180901
  2. LEVOTHYROXINE [Concomitant]
     Active Substance: LEVOTHYROXINE
  3. LOSARTAN [Concomitant]
     Active Substance: LOSARTAN
  4. METOPROLOL [Concomitant]
     Active Substance: METOPROLOL
  5. HYDROCHLOROTHIYDE 25MG [Concomitant]
  6. VITAMINS [Concomitant]
     Active Substance: VITAMINS
  7. VITAMIN D NOS [Concomitant]
     Active Substance: VITAMIN D NOS

REACTIONS (2)
  - Hot flush [None]
  - Urinary tract disorder [None]

NARRATIVE: CASE EVENT DATE: 20180901
